FAERS Safety Report 5034507-3 (Version None)
Quarter: 2006Q2

REPORT INFORMATION
  Report Type: 
  Country: None (occurrence: None)
  Receive Date: 20060623
  Receipt Date: 20060623
  Transmission Date: 20061013
  Serious: Yes (Other)
  Sender: FDA-Public Use
  Company Number: None

PATIENT
  Age: 26 Year
  Sex: Male
  Weight: 12.7007 kg

DRUGS (7)
  1. REMICADE [Suspect]
     Indication: CROHN'S DISEASE
     Dosage: 460 MG
     Dates: start: 20060413
  2. REMICADE [Suspect]
     Indication: CROHN'S DISEASE
     Dosage: 460 MG
     Dates: start: 20060511
  3. REMICADE [Suspect]
     Indication: CROHN'S DISEASE
     Dosage: 460 MG
     Dates: start: 20060615
  4. ASACOL [Concomitant]
  5. PREDNISONE [Concomitant]
  6. DOXYCYCLINE [Concomitant]
  7. VITAMINS [Concomitant]

REACTIONS (2)
  - INFUSION RELATED REACTION [None]
  - RASH [None]
